FAERS Safety Report 19433462 (Version 1)
Quarter: 2021Q2

REPORT INFORMATION
  Report Type: Spontaneous
  Country: CA (occurrence: CA)
  Receive Date: 20210618
  Receipt Date: 20210618
  Transmission Date: 20210717
  Serious: Yes (Hospitalization, Other)
  Sender: FDA-Public Use
  Company Number: CA-AUROBINDO-AUR-APL-2021-025081

PATIENT
  Age: 46 Year
  Sex: Female

DRUGS (1)
  1. TRANEXAMIC ACID. [Suspect]
     Active Substance: TRANEXAMIC ACID
     Indication: HEAVY MENSTRUAL BLEEDING
     Dosage: 1000 MILLIGRAM, FOUR TIMES/DAY
     Route: 048

REACTIONS (1)
  - Pulmonary embolism [Unknown]
